FAERS Safety Report 15533188 (Version 2)
Quarter: 2025Q1

REPORT INFORMATION
  Report Type: Spontaneous
  Country: BR (occurrence: BR)
  Receive Date: 20181019
  Receipt Date: 20250206
  Transmission Date: 20250408
  Serious: Yes (Death, Other)
  Sender: PFIZER
  Company Number: BR-PFIZER INC-2016238380

PATIENT

DRUGS (1)
  1. DEPO-PROVERA [Suspect]
     Active Substance: MEDROXYPROGESTERONE ACETATE
     Indication: Contraception
     Dosage: 150 MG, EVERY 3 MONTHS
     Route: 064
     Dates: start: 201503, end: 20151229

REACTIONS (4)
  - Death [Fatal]
  - Maternal exposure during pregnancy [Unknown]
  - Foetal malformation [Unknown]
  - Premature baby [Unknown]

NARRATIVE: CASE EVENT DATE: 20160201
